FAERS Safety Report 11271822 (Version 1)
Quarter: 2015Q3

REPORT INFORMATION
  Report Type: Report from Study
  Country: CA (occurrence: CA)
  Receive Date: 20150715
  Receipt Date: 20150715
  Transmission Date: 20151125
  Serious: Yes (Other)
  Sender: FDA-Public Use
  Company Number: CA-ROCHE-1278647

PATIENT
  Age: 72 Year
  Sex: Female
  Weight: 79.8 kg

DRUGS (17)
  1. ELAVIL [Concomitant]
     Active Substance: AMITRIPTYLINE HYDROCHLORIDE
  2. LEVOTHYROXINE SODIUM. [Concomitant]
     Active Substance: LEVOTHYROXINE SODIUM
  3. SERTRALINE [Concomitant]
     Active Substance: SERTRALINE HYDROCHLORIDE
  4. ACETAMINOPHEN. [Concomitant]
     Active Substance: ACETAMINOPHEN
     Indication: PREMEDICATION
     Route: 048
     Dates: start: 20110614
  5. LIPITOR [Concomitant]
     Active Substance: ATORVASTATIN CALCIUM
  6. RITUXAN [Suspect]
     Active Substance: RITUXIMAB
     Route: 042
     Dates: start: 20140616
  7. DIPHENHYDRAMINE HYDROCHLORIDE. [Concomitant]
     Active Substance: DIPHENHYDRAMINE HYDROCHLORIDE
     Indication: PREMEDICATION
     Route: 048
     Dates: start: 20101115
  8. FOLIC ACID. [Concomitant]
     Active Substance: FOLIC ACID
  9. INDAPAMIDE. [Concomitant]
     Active Substance: INDAPAMIDE
  10. METHOTREXATE [Concomitant]
     Active Substance: METHOTREXATE
  11. COUMADIN [Concomitant]
     Active Substance: WARFARIN SODIUM
  12. RITUXAN [Suspect]
     Active Substance: RITUXIMAB
     Indication: RHEUMATOID ARTHRITIS
     Route: 042
     Dates: start: 20101101
  13. METHYLPREDNISOLONE. [Concomitant]
     Active Substance: METHYLPREDNISOLONE
     Indication: PREMEDICATION
     Route: 042
     Dates: start: 20101115
  14. FOSAMAX [Concomitant]
     Active Substance: ALENDRONATE SODIUM
  15. RAMIPRIL. [Concomitant]
     Active Substance: RAMIPRIL
     Indication: HYPERTENSION
  16. TYLENOL [Concomitant]
     Active Substance: ACETAMINOPHEN
  17. CLONAZEPAM. [Concomitant]
     Active Substance: CLONAZEPAM

REACTIONS (8)
  - Blood pressure increased [Unknown]
  - Hypotension [Unknown]
  - Rheumatoid arthritis [Unknown]
  - Injection site extravasation [Recovered/Resolved]
  - Heart rate irregular [Unknown]
  - Lung neoplasm malignant [Not Recovered/Not Resolved]
  - Influenza [Unknown]
  - Urinary tract infection [Unknown]

NARRATIVE: CASE EVENT DATE: 20130917
